FAERS Safety Report 22659875 (Version 1)
Quarter: 2023Q2

REPORT INFORMATION
  Report Type: Spontaneous
  Country: ES (occurrence: ES)
  Receive Date: 20230630
  Receipt Date: 20230630
  Transmission Date: 20230722
  Serious: Yes (Hospitalization)
  Sender: FDA-Public Use
  Company Number: ES-ELI_LILLY_AND_COMPANY-ES202306015162

PATIENT
  Age: 51 Year
  Sex: Female

DRUGS (2)
  1. IXEKIZUMAB [Suspect]
     Active Substance: IXEKIZUMAB
     Indication: Psoriasis
     Dosage: 160 MG, SINGLE
     Route: 065
  2. IXEKIZUMAB [Suspect]
     Active Substance: IXEKIZUMAB
     Dosage: 80 MG, UNKNOWN
     Route: 065

REACTIONS (5)
  - Raynaud^s phenomenon [Recovering/Resolving]
  - Peripheral ischaemia [Recovering/Resolving]
  - Ischaemic skin ulcer [Recovered/Resolved]
  - Wound infection [Recovered/Resolved]
  - Paradoxical psoriatic arthritis [Recovered/Resolved]
